FAERS Safety Report 8891111 (Version 1)
Quarter: 2012Q4

REPORT INFORMATION
  Report Type: 
  Country: NO (occurrence: NO)
  Receive Date: 20121107
  Receipt Date: 20121107
  Transmission Date: 20130627
  Serious: Yes (Hospitalization)
  Sender: FDA-Public Use
  Company Number: NO-JNJFOC-20121015597

PATIENT
  Age: 51 Year
  Sex: Female

DRUGS (8)
  1. REMICADE [Suspect]
     Indication: ANKYLOSING SPONDYLITIS
     Route: 042
     Dates: start: 20120903
  2. REMICADE [Suspect]
     Indication: ANKYLOSING SPONDYLITIS
     Dosage: third infusion
     Route: 042
     Dates: start: 20121009, end: 20121009
  3. ATACAND [Concomitant]
     Route: 048
  4. LORATADIN [Concomitant]
     Route: 048
  5. MICROGYNON [Concomitant]
     Dosage: 1 dosage form according to scheme.
     Route: 048
  6. PARACET [Concomitant]
     Route: 048
  7. ZANTAC [Concomitant]
     Route: 048
  8. LORATADIN [Concomitant]
     Route: 048

REACTIONS (7)
  - Chest discomfort [Recovered/Resolved]
  - Feeling hot [Recovered/Resolved]
  - Dyspnoea [Recovered/Resolved]
  - Rash [Recovered/Resolved]
  - Nausea [Recovered/Resolved]
  - Vomiting [Recovered/Resolved]
  - Infusion related reaction [Recovered/Resolved]
